FAERS Safety Report 6050273-7 (Version None)
Quarter: 2009Q1

REPORT INFORMATION
  Report Type: 
  Country: None (occurrence: None)
  Receive Date: 20090126
  Receipt Date: 20090114
  Transmission Date: 20090719
  Serious: Yes (Hospitalization, Other)
  Sender: FDA-Public Use
  Company Number: FR-AMGEN-US329211

PATIENT
  Age: 41 Year
  Sex: Male

DRUGS (4)
  1. ENBREL [Suspect]
     Indication: PSORIASIS
     Route: 058
     Dates: start: 20071123
  2. DOVOBET [Concomitant]
     Dosage: UNKNOWN
     Route: 061
  3. DAIVONEX [Concomitant]
     Dosage: UNKNOWN
     Route: 061
  4. BIFONAZOLE [Concomitant]
     Route: 065

REACTIONS (4)
  - CONDITION AGGRAVATED [None]
  - HYPERKERATOSIS [None]
  - PSORIASIS [None]
  - SQUAMOUS CELL CARCINOMA OF SKIN [None]
